FAERS Safety Report 16249525 (Version 2)
Quarter: 2019Q2

REPORT INFORMATION
  Report Type: Spontaneous
  Country: HU (occurrence: HU)
  Receive Date: 20190429
  Receipt Date: 20190509
  Transmission Date: 20190711
  Serious: Yes (Other)
  Sender: FDA-Public Use
  Company Number: HU-BRISTOL-MYERS SQUIBB COMPANY-BMS-2019-039330

PATIENT
  Age: 54 Year
  Sex: Male

DRUGS (3)
  1. PAZOPANIB [Suspect]
     Active Substance: PAZOPANIB
     Indication: CLEAR CELL RENAL CELL CARCINOMA
     Dosage: 800 MILLIGRAM, QD
     Route: 065
     Dates: start: 20160224, end: 201703
  2. OPDIVO [Suspect]
     Active Substance: NIVOLUMAB
     Indication: CLEAR CELL RENAL CELL CARCINOMA
     Dosage: UNK (6 CYCLES)
     Route: 065
     Dates: end: 20180222
  3. AMIODARONE [Concomitant]
     Active Substance: AMIODARONE
     Indication: PRODUCT USED FOR UNKNOWN INDICATION
     Route: 065

REACTIONS (21)
  - Metastases to spine [Unknown]
  - Pulmonary fibrosis [Unknown]
  - Haematochezia [Unknown]
  - Cough [Recovered/Resolved]
  - Blood thyroid stimulating hormone increased [Unknown]
  - Colitis [Unknown]
  - Metastases to lung [Unknown]
  - Hepatic enzyme increased [Unknown]
  - Metastases to bone [Unknown]
  - Arthralgia [Recovering/Resolving]
  - Weight decreased [Unknown]
  - Pneumonitis [Not Recovered/Not Resolved]
  - Mucous stools [Unknown]
  - Malignant neoplasm progression [Unknown]
  - Bone lesion [Unknown]
  - Neoplasm recurrence [Unknown]
  - Abdominal pain [Unknown]
  - Diarrhoea [Unknown]
  - Metastases to central nervous system [Unknown]
  - Clear cell renal cell carcinoma [Unknown]
  - Dyspnoea [Recovered/Resolved]

NARRATIVE: CASE EVENT DATE: 20160421
